FAERS Safety Report 17326192 (Version 2)
Quarter: 2020Q1

REPORT INFORMATION
  Report Type: Spontaneous
  Country: US (occurrence: US)
  Receive Date: 20200127
  Receipt Date: 20200131
  Transmission Date: 20200409
  Serious: Yes (Other)
  Sender: FDA-Public Use
  Company Number: US-GW PHARMA-202001USGW00261

PATIENT

DRUGS (3)
  1. EPIDIOLEX [Suspect]
     Active Substance: CANNABIDIOL
     Indication: EPILEPSY
     Dosage: 400 MILLIGRAM, BID
     Route: 048
     Dates: start: 20190710
  2. EPIDIOLEX [Suspect]
     Active Substance: CANNABIDIOL
     Dosage: 500 MILLIGRAM, BID
     Route: 048
  3. LAMICTAL [Concomitant]
     Active Substance: LAMOTRIGINE
     Indication: PRODUCT USED FOR UNKNOWN INDICATION
     Dosage: 2 DOSAGE FORM, BID (2 TABLETS)
     Route: 065

REACTIONS (1)
  - Seizure [Unknown]

NARRATIVE: CASE EVENT DATE: 2019
